FAERS Safety Report 19217301 (Version 2)
Quarter: 2021Q2

REPORT INFORMATION
  Report Type: Spontaneous
  Country: US (occurrence: US)
  Receive Date: 20210505
  Receipt Date: 20210511
  Transmission Date: 20210717
  Serious: No
  Sender: FDA-Public Use
  Company Number: US-SA-2021SA147202

PATIENT
  Age: 29 Year
  Sex: Male

DRUGS (2)
  1. DOXYCYCLINE HYCLATE. [Concomitant]
     Active Substance: DOXYCYCLINE HYCLATE
     Dosage: UNK
  2. DUPIXENT [Suspect]
     Active Substance: DUPILUMAB
     Indication: DERMATITIS ATOPIC
     Dosage: 300 MG, QOW
     Route: 058
     Dates: start: 20210301

REACTIONS (4)
  - Discomfort [Unknown]
  - Sleep disorder [Unknown]
  - Rash [Recovering/Resolving]
  - Dermatitis atopic [Recovering/Resolving]
